FAERS Safety Report 20038665 (Version 1)
Quarter: 2021Q4

REPORT INFORMATION
  Report Type: Spontaneous
  Country: US (occurrence: US)
  Receive Date: 20211105
  Receipt Date: 20211105
  Transmission Date: 20220303
  Serious: Yes (Hospitalization, Other)
  Sender: FDA-Public Use
  Company Number: US-PURDUE PHARMA-USA-2021-0288739

PATIENT
  Age: 60 Year
  Sex: Female

DRUGS (2)
  1. MORPHINE SULFATE [Suspect]
     Active Substance: MORPHINE SULFATE
     Indication: Cancer pain
     Dosage: 30 MG, BID
     Route: 048
  2. OXYCODONE HYDROCHLORIDE [Suspect]
     Active Substance: OXYCODONE HYDROCHLORIDE
     Indication: Cancer pain
     Dosage: UNK, PRN
     Route: 048

REACTIONS (10)
  - Pneumonia [Unknown]
  - Adrenal insufficiency [Unknown]
  - Productive cough [Unknown]
  - Weight decreased [Unknown]
  - Pyrexia [Unknown]
  - Hypotension [Unknown]
  - Dyspnoea [Unknown]
  - Dizziness postural [Unknown]
  - Nausea [Unknown]
  - Fatigue [Unknown]
